FAERS Safety Report 21884760 (Version 1)
Quarter: 2023Q1

REPORT INFORMATION
  Report Type: Spontaneous
  Country: JP (occurrence: JP)
  Receive Date: 20230119
  Receipt Date: 20230119
  Transmission Date: 20230418
  Serious: Yes (Life-Threatening, Hospitalization)
  Sender: FDA-Public Use
  Company Number: JP-ELI_LILLY_AND_COMPANY-JP202301005138AA

PATIENT
  Sex: Female

DRUGS (1)
  1. VERZENIO [Suspect]
     Active Substance: ABEMACICLIB
     Indication: Breast cancer
     Dosage: UNK UNK, UNKNOWN
     Route: 048
     Dates: end: 20221216

REACTIONS (4)
  - Septic shock [Unknown]
  - Multiple organ dysfunction syndrome [Unknown]
  - Febrile neutropenia [Unknown]
  - Hepatic function abnormal [Unknown]
